FAERS Safety Report 4519131-0 (Version None)
Quarter: 2004Q4

REPORT INFORMATION
  Report Type: 
  Country: None (occurrence: None)
  Receive Date: 20041206
  Receipt Date: 20041123
  Transmission Date: 20050328
  Serious: Yes (Disabling, Other)
  Sender: FDA-Public Use
  Company Number: GB-BRISTOL-MYERS SQUIBB COMPANY-12773560

PATIENT
  Age: 49 Year
  Sex: Male

DRUGS (9)
  1. ABILIFY [Suspect]
     Indication: SCHIZOPHRENIA
     Route: 048
     Dates: start: 20041011, end: 20041017
  2. PROCYCLIDINE HYDROCHLORIDE 2MG TAB [Concomitant]
     Indication: EXTRAPYRAMIDAL DISORDER
     Route: 048
  3. OMEPRAZOLE [Concomitant]
     Route: 048
  4. ALLOPURINOL [Concomitant]
     Route: 048
  5. SPIRONOLACTONE [Concomitant]
     Route: 048
  6. TEMAZEPAM [Concomitant]
     Route: 048
  7. THIAMINE [Concomitant]
     Route: 048
  8. LORAZEPAM [Concomitant]
     Route: 048
  9. VITAMIN B COMPLEX CAP [Concomitant]
     Route: 048

REACTIONS (1)
  - CATATONIA [None]
